FAERS Safety Report 4948628-4 (Version None)
Quarter: 2006Q1

REPORT INFORMATION
  Report Type: 
  Country: None (occurrence: None)
  Receive Date: 20060313
  Receipt Date: 20060228
  Transmission Date: 20060701
  Serious: Yes (Hospitalization, Disabling, Other)
  Sender: FDA-Public Use
  Company Number: 2006032578

PATIENT
  Sex: Female

DRUGS (2)
  1. SILDENAFIL CITRATE [Suspect]
     Indication: PULMONARY HYPERTENSION
     Dosage: 25 MG (12.5 MG, 2 IN 1 D)
     Dates: start: 20040827
  2. LASIX [Concomitant]

REACTIONS (12)
  - ANAEMIA [None]
  - CYANOSIS [None]
  - GASTRITIS [None]
  - MELAENA [None]
  - MOBILITY DECREASED [None]
  - OEDEMA [None]
  - PLEURAL EFFUSION [None]
  - PNEUMONIA [None]
  - PULMONARY ARTERIAL PRESSURE INCREASED [None]
  - PULMONARY OEDEMA [None]
  - RIB FRACTURE [None]
  - SPINAL COMPRESSION FRACTURE [None]
